FAERS Safety Report 19112485 (Version 1)
Quarter: 2021Q2

REPORT INFORMATION
  Report Type: Spontaneous
  Country: NL (occurrence: NL)
  Receive Date: 20210408
  Receipt Date: 20210408
  Transmission Date: 20210717
  Serious: Yes (Other)
  Sender: FDA-Public Use
  Company Number: NL-TEVA-2021-NL-1897819

PATIENT
  Age: 9 Year
  Sex: Male
  Weight: 25 kg

DRUGS (2)
  1. METHYLFENIDAAT TABLET  5MG / BRAND NAME NOT SPECIFIED [Suspect]
     Active Substance: METHYLPHENIDATE HYDROCHLORIDE
     Dosage: 5 MILLIGRAM DAILY; TWICE A DAY
     Dates: start: 20210120, end: 20210209
  2. METHYLFENIDAAT TABLET  5MG / BRAND NAME NOT SPECIFIED [Suspect]
     Active Substance: METHYLPHENIDATE HYDROCHLORIDE
     Indication: ATTENTION DEFICIT HYPERACTIVITY DISORDER
     Dosage: 10 MILLIGRAM DAILY; TWICE A DAY
     Dates: start: 20210128, end: 20210209

REACTIONS (3)
  - Suicidal ideation [Recovered/Resolved]
  - Fatigue [Recovered/Resolved]
  - Listless [Recovered/Resolved]

NARRATIVE: CASE EVENT DATE: 20210206
